FAERS Safety Report 16409282 (Version 1)
Quarter: 2019Q3

REPORT INFORMATION
  Report Type: Spontaneous
  Country: US (occurrence: US)
  Receive Date: 20190608
  Receipt Date: 20190608
  Transmission Date: 20191004
  Serious: Yes (Disabling)
  Sender: FDA-Public Use
  Company Number: None

PATIENT
  Age: 31 Year
  Sex: Female

DRUGS (3)
  1. VITAMIN D [Concomitant]
     Active Substance: VITAMIN D NOS
  2. MIRENA [Suspect]
     Active Substance: LEVONORGESTREL
  3. PRENATAL VITAMINS [Concomitant]
     Active Substance: VITAMINS

REACTIONS (7)
  - Nipple exudate bloody [None]
  - Hyperhidrosis [None]
  - Skin exfoliation [None]
  - Breast pain [None]
  - Fibroadenoma of breast [None]
  - Breast discharge [None]
  - Fungal skin infection [None]

NARRATIVE: CASE EVENT DATE: 20160601
